FAERS Safety Report 5519391-3 (Version None)
Quarter: 2007Q4

REPORT INFORMATION
  Report Type: 
  Country: None (occurrence: None)
  Receive Date: 20071116
  Receipt Date: 20071114
  Transmission Date: 20080405
  Serious: Yes (Other)
  Sender: FDA-Public Use
  Company Number: A0685162A

PATIENT
  Age: 77 Year
  Sex: Male

DRUGS (2)
  1. OASIS MOISTURIZING MOUTH SPRAY [Suspect]
  2. COREG [Concomitant]

REACTIONS (9)
  - CARDIAC DISORDER [None]
  - CARDIAC FAILURE CONGESTIVE [None]
  - CHEST PAIN [None]
  - COUGH [None]
  - DYSPNOEA [None]
  - FATIGUE [None]
  - FOREIGN BODY TRAUMA [None]
  - RETCHING [None]
  - THROAT IRRITATION [None]
